FAERS Safety Report 10521936 (Version 1)
Quarter: 2014Q4

REPORT INFORMATION
  Report Type: Spontaneous
  Country: US (occurrence: None)
  Receive Date: 20141014
  Receipt Date: 20141014
  Transmission Date: 20150528
  Serious: Yes (Other)
  Sender: FDA-Public Use
  Company Number: 2014-US-002405

PATIENT
  Age: 53 Year
  Sex: Male
  Weight: 104.3 kg

DRUGS (12)
  1. WELLBUTRIN [Concomitant]
     Active Substance: BUPROPION HYDROCHLORIDE
  2. SULFACETAMIDE SODIUM 9SULFACETAMIDE SODIUM) [Concomitant]
  3. MULTI VITAMIN WITH FLUORIDE (ASCORBIC ACID, CYANOCOBALAMIN, DI-ALPHA TOCOPHERYL ACETATE, FOLIC ACID, NICOTINIC ACID, PYRIDOXINE, RETINOL, RIBOFAVIN, SODIUM FLUORIDE, THIAMINE [Concomitant]
  4. OMEPRAZOLE ACID REDUCER (OMEPRAZOLE) [Concomitant]
  5. XYREM [Suspect]
     Active Substance: SODIUM OXYBATE
     Indication: NARCOLEPSY
     Route: 048
     Dates: start: 201210, end: 2012
  6. ZOLCOR (SIMVASTATIN) [Concomitant]
  7. LORAZEPAM (LORAZEPAM) [Concomitant]
     Active Substance: LORAZEPAM
  8. FLONASE (FLUTICASONE PROPIONATE) NASAL SPRAY [Concomitant]
  9. MINOCYCLINE HCL (MINOCYCLINE HYDROCHLORIDE) [Concomitant]
  10. ASPIRIN BUFFERED (ACETYLSALICYLIC ACID) [Concomitant]
  11. VYVANSE [Concomitant]
     Active Substance: LISDEXAMFETAMINE DIMESYLATE
  12. ALLEGRA (FEXOFENADINE HYDROCHLORIDE) [Concomitant]

REACTIONS (8)
  - Change in sustained attention [None]
  - Cognitive disorder [None]
  - Activities of daily living impaired [None]
  - Feeling abnormal [None]
  - Drug diversion [None]
  - Condition aggravated [None]
  - Visual acuity reduced [None]
  - Somnolence [None]
